FAERS Safety Report 7142219-5 (Version None)
Quarter: 2010Q4

REPORT INFORMATION
  Report Type: 
  Country: None (occurrence: None)
  Receive Date: 20101207
  Receipt Date: 20101129
  Transmission Date: 20110411
  Serious: Yes (Hospitalization)
  Sender: FDA-Public Use
  Company Number: PHHO2010FR17684

PATIENT
  Sex: Male

DRUGS (1)
  1. STI571/CGP57148B T35717+CAPS [Suspect]
     Indication: CHRONIC MYELOID LEUKAEMIA
     Dosage: UNK
     Route: 048
     Dates: start: 20010101

REACTIONS (5)
  - APHASIA [None]
  - CONFUSIONAL STATE [None]
  - IMMUNOSUPPRESSION [None]
  - MENINGOENCEPHALITIS HERPETIC [None]
  - PYREXIA [None]
